FAERS Safety Report 6246348-X (Version None)
Quarter: 2009Q2

REPORT INFORMATION
  Report Type: 
  Country: None (occurrence: None)
  Receive Date: 20090624
  Receipt Date: 20090624
  Transmission Date: 20091009
  Serious: Yes (Other)
  Sender: FDA-Public Use
  Company Number: None

PATIENT
  Sex: Female
  Weight: 77.1115 kg

DRUGS (3)
  1. LEVOTHYROXINE SODIUM [Suspect]
     Indication: HYPOTHYROIDISM
     Dosage: A PILL ONCE A DAY PO
     Route: 048
     Dates: start: 20040824, end: 20090224
  2. SYNTHROID [Suspect]
  3. LEVOTHYROXINE SODIUM [Suspect]

REACTIONS (2)
  - RASH [None]
  - VULVAL DISORDER [None]
